FAERS Safety Report 8427398-1 (Version None)
Quarter: 2012Q2

REPORT INFORMATION
  Report Type: 
  Country: None (occurrence: None)
  Receive Date: 20120611
  Receipt Date: 20120531
  Transmission Date: 20120825
  Serious: Yes (Hospitalization, Other)
  Sender: FDA-Public Use
  Company Number: US-MERCK-1110USA00940

PATIENT
  Age: 70 Year
  Sex: Female
  Weight: 66 kg

DRUGS (4)
  1. LIPITOR [Concomitant]
     Route: 048
  2. FOSAMAX [Suspect]
     Indication: OSTEOPOROSIS
     Route: 048
     Dates: start: 19980101, end: 20090926
  3. METFORMIN [Concomitant]
     Route: 048
  4. ALENDRONATE SODIUM [Suspect]
     Indication: OSTEOPOROSIS
     Route: 048
     Dates: start: 20071101, end: 20080901

REACTIONS (36)
  - ANXIETY [None]
  - TYPE 2 DIABETES MELLITUS [None]
  - PARKINSONISM [None]
  - MIXED INCONTINENCE [None]
  - WEIGHT INCREASED [None]
  - STRESS FRACTURE [None]
  - DYSPHAGIA [None]
  - FALL [None]
  - MUSCLE STRAIN [None]
  - HYPERTENSION [None]
  - VITAMIN D DEFICIENCY [None]
  - VITAMIN A INCREASED [None]
  - FLATULENCE [None]
  - OSTEOARTHRITIS [None]
  - FEMUR FRACTURE [None]
  - DEVICE FAILURE [None]
  - FRACTURE NONUNION [None]
  - SPONDYLOLISTHESIS [None]
  - FRACTURED COCCYX [None]
  - CARDIAC MURMUR [None]
  - DEPRESSION [None]
  - OSTEOPENIA [None]
  - DIZZINESS [None]
  - UTERINE DISORDER [None]
  - CATARACT [None]
  - CORONARY ARTERY DISEASE [None]
  - AMYOTROPHIC LATERAL SCLEROSIS [None]
  - BONE DISORDER [None]
  - LUMBAR SPINAL STENOSIS [None]
  - HERPES ZOSTER [None]
  - SENSATION OF FOREIGN BODY [None]
  - URINARY TRACT INFECTION [None]
  - STRESS [None]
  - SLEEP DISORDER [None]
  - ROTATOR CUFF SYNDROME [None]
  - CARPAL TUNNEL SYNDROME [None]
